FAERS Safety Report 21090077 (Version 1)
Quarter: 2022Q3

REPORT INFORMATION
  Report Type: Report from Study
  Country: IT (occurrence: IT)
  Receive Date: 20220715
  Receipt Date: 20220715
  Transmission Date: 20221027
  Serious: Yes (Other)
  Sender: FDA-Public Use
  Company Number: IT-TAKEDA-2022TUS047439

PATIENT
  Sex: Male
  Weight: 81 kg

DRUGS (16)
  1. ADVATE [Suspect]
     Active Substance: ANTIHEMOPHILIC FACTOR, HUMAN RECOMBINANT
     Indication: Factor VIII deficiency
     Dosage: UNK
     Route: 042
     Dates: start: 20141111
  2. ADVATE [Suspect]
     Active Substance: ANTIHEMOPHILIC FACTOR, HUMAN RECOMBINANT
     Indication: Factor VIII deficiency
     Dosage: UNK
     Route: 042
     Dates: start: 20141111
  3. ADVATE [Suspect]
     Active Substance: ANTIHEMOPHILIC FACTOR, HUMAN RECOMBINANT
     Indication: Factor VIII deficiency
     Dosage: UNK
     Route: 042
     Dates: start: 20141111
  4. ADVATE [Suspect]
     Active Substance: ANTIHEMOPHILIC FACTOR, HUMAN RECOMBINANT
     Indication: Prophylaxis
  5. ADVATE [Suspect]
     Active Substance: ANTIHEMOPHILIC FACTOR, HUMAN RECOMBINANT
     Indication: Prophylaxis
  6. ADVATE [Suspect]
     Active Substance: ANTIHEMOPHILIC FACTOR, HUMAN RECOMBINANT
     Indication: Prophylaxis
  7. PENICILLIN G BENZATHINE [Concomitant]
     Active Substance: PENICILLIN G BENZATHINE
     Indication: Syphilis
     Dosage: 240000 INTERNATIONAL UNIT
     Route: 065
     Dates: start: 20160216, end: 20160301
  8. TRAMADOL [Concomitant]
     Active Substance: TRAMADOL
     Indication: Pain prophylaxis
     Dosage: UNK
     Route: 065
     Dates: start: 20191005
  9. CARBAMAZEPINE [Concomitant]
     Active Substance: CARBAMAZEPINE
     Indication: Trigeminal neuralgia
     Dosage: 100 MILLIGRAM, BID
     Route: 065
     Dates: start: 20191006, end: 20191009
  10. CARBAMAZEPINE [Concomitant]
     Active Substance: CARBAMAZEPINE
     Dosage: 150 MILLIGRAM, BID
     Route: 065
     Dates: start: 20191010, end: 20191014
  11. CARBAMAZEPINE [Concomitant]
     Active Substance: CARBAMAZEPINE
     Dosage: 100 MILLIGRAM, BID
     Route: 065
     Dates: start: 20191015, end: 20191206
  12. PREGABALIN [Concomitant]
     Active Substance: PREGABALIN
     Indication: Headache
     Dosage: 25 MILLIGRAM, QD
     Route: 065
     Dates: start: 20200610
  13. PINEAL [Concomitant]
     Indication: Headache
     Dosage: UNK, QD
     Route: 050
     Dates: start: 20200610
  14. BECLOMETHASONE DIPROPIONATE [Concomitant]
     Active Substance: BECLOMETHASONE DIPROPIONATE
     Indication: Nasal polyps
     Dosage: UNK, BID
     Route: 065
     Dates: start: 20200722, end: 20201022
  15. BUDESONIDE [Concomitant]
     Active Substance: BUDESONIDE
     Indication: Nasal polyps
     Dosage: UNK, BID
     Route: 065
     Dates: start: 20201221
  16. RINOSTIL [Concomitant]
     Indication: Nasal polyps
     Dosage: UNK, QD
     Route: 065
     Dates: start: 20201221

REACTIONS (2)
  - Haemarthrosis [Recovered/Resolved]
  - Synovitis [Recovered/Resolved]

NARRATIVE: CASE EVENT DATE: 20210901
